FAERS Safety Report 21590463 (Version 1)
Quarter: 2022Q4

REPORT INFORMATION
  Report Type: Spontaneous
  Country: US (occurrence: US)
  Receive Date: 20221114
  Receipt Date: 20221114
  Transmission Date: 20230113
  Serious: No
  Sender: FDA-Public Use
  Company Number: US-BEH-2022151614

PATIENT
  Age: 62 Year
  Sex: Female

DRUGS (4)
  1. HIZENTRA [Suspect]
     Active Substance: HUMAN IMMUNOGLOBULIN G
     Indication: Selective IgG subclass deficiency
     Dosage: 8 GRAM, QW
     Route: 058
     Dates: start: 20220726, end: 202210
  2. CIMETIDINE [Concomitant]
     Active Substance: CIMETIDINE
  3. LEVOTHYROXINE [Concomitant]
     Active Substance: LEVOTHYROXINE
  4. MELOXICAM [Concomitant]
     Active Substance: MELOXICAM

REACTIONS (4)
  - Arthralgia [Unknown]
  - Myalgia [Unknown]
  - Drug intolerance [Unknown]
  - Pain in extremity [Unknown]

NARRATIVE: CASE EVENT DATE: 20220907
